FAERS Safety Report 5051350-X (Version None)
Quarter: 2006Q3

REPORT INFORMATION
  Report Type: 
  Country: None (occurrence: None)
  Receive Date: 20060710
  Receipt Date: 20060622
  Transmission Date: 20061208
  Serious: Yes (Other)
  Sender: FDA-Public Use
  Company Number: 2006078751

PATIENT

DRUGS (1)
  1. COOL MINT LISTERINE (MENTHOL, METHYL SALICYLATE, EUCALYPTOL, THYMOL) [Suspect]
     Dosage: THREE 500 ML BOTTLES ONCE, ORAL
     Route: 048
     Dates: start: 20060622, end: 20060622

REACTIONS (2)
  - CONVULSION [None]
  - FOAMING AT MOUTH [None]
